FAERS Safety Report 9482412 (Version 1)
Quarter: 2013Q3

REPORT INFORMATION
  Report Type: Spontaneous
  Country: US (occurrence: US)
  Receive Date: 20130828
  Receipt Date: 20130828
  Transmission Date: 20140515
  Serious: Yes (Other)
  Sender: FDA-Public Use
  Company Number: US-PFIZER INC-2013246124

PATIENT
  Sex: 0

DRUGS (3)
  1. DILANTIN-125 [Suspect]
     Dosage: UNK
  2. TOPAMAX [Concomitant]
     Dosage: UNK
  3. VIMPAT [Concomitant]
     Dosage: UNK

REACTIONS (3)
  - Convulsion [Unknown]
  - Laceration [Unknown]
  - Contusion [Unknown]
